FAERS Safety Report 8615415-5 (Version None)
Quarter: 2012Q3

REPORT INFORMATION
  Report Type: 
  Country: None (occurrence: None)
  Receive Date: 20120823
  Receipt Date: 20120813
  Transmission Date: 20120928
  Serious: Yes (Other)
  Sender: FDA-Public Use
  Company Number: US-PURDUE-USA-2012-0088399

PATIENT
  Age: 57 Year
  Sex: Male
  Weight: 106.58 kg

DRUGS (13)
  1. OXYCONTIN [Suspect]
     Dosage: 160 MG, BID
     Dates: end: 20120401
  2. INTERFERON                         /05982601/ [Concomitant]
     Indication: HEPATITIS C
  3. PEGINTRON                          /01543001/ [Concomitant]
     Indication: PRODUCT USED FOR UNKNOWN INDICATION
  4. NEUPOGEN [Concomitant]
     Indication: PRODUCT USED FOR UNKNOWN INDICATION
  5. CLONAZEPAM [Concomitant]
     Indication: PRODUCT USED FOR UNKNOWN INDICATION
  6. LORTAB [Concomitant]
     Indication: PAIN
  7. OXYCONTIN [Suspect]
     Dosage: 20 MG, SEE TEXT
  8. OXYCONTIN [Suspect]
     Dosage: 40 MG, UNK
  9. OXYCONTIN [Suspect]
     Indication: PAIN IN EXTREMITY
     Dosage: 10 MG, SEE TEXT
     Dates: start: 20020101
  10. LEXAPRO [Concomitant]
     Indication: PRODUCT USED FOR UNKNOWN INDICATION
  11. FLEXERIL [Concomitant]
     Dosage: 10 MG, TID
  12. FLUTICASONE PROPIONATE [Concomitant]
     Indication: PRODUCT USED FOR UNKNOWN INDICATION
  13. RIBAVIRIN [Concomitant]
     Indication: PRODUCT USED FOR UNKNOWN INDICATION

REACTIONS (47)
  - BRAIN INJURY [None]
  - MAJOR DEPRESSION [None]
  - LOGORRHOEA [None]
  - ERYTHEMA [None]
  - EUPHORIC MOOD [None]
  - DRUG INEFFECTIVE [None]
  - DISTURBANCE IN ATTENTION [None]
  - SENSORY INTEGRATIVE DYSFUNCTION [None]
  - DIZZINESS [None]
  - MUSCULOSKELETAL PAIN [None]
  - PAIN IN EXTREMITY [None]
  - PAIN [None]
  - NECK PAIN [None]
  - DEAFNESS [None]
  - NEUROTOXICITY [None]
  - DRUG DEPENDENCE [None]
  - ALLODYNIA [None]
  - COSTOCHONDRITIS [None]
  - IRRITABILITY [None]
  - APATHY [None]
  - BRADYPHRENIA [None]
  - LOSS OF LIBIDO [None]
  - DRUG WITHDRAWAL SYNDROME [None]
  - UNEVALUABLE EVENT [None]
  - HYPERAESTHESIA [None]
  - OEDEMA PERIPHERAL [None]
  - CHILLS [None]
  - INTENTIONAL DRUG MISUSE [None]
  - SLEEP DISORDER [None]
  - INJURY [None]
  - NERVOUS SYSTEM DISORDER [None]
  - NEUROPATHY PERIPHERAL [None]
  - DYSARTHRIA [None]
  - ARTHRALGIA [None]
  - BACK PAIN [None]
  - JUDGEMENT IMPAIRED [None]
  - INADEQUATE ANALGESIA [None]
  - AFFECTIVE DISORDER [None]
  - WRONG TECHNIQUE IN DRUG USAGE PROCESS [None]
  - FATIGUE [None]
  - ANHEDONIA [None]
  - BALANCE DISORDER [None]
  - LOSS OF EMPLOYMENT [None]
  - DECREASED INTEREST [None]
  - ANXIETY [None]
  - DEPRESSED MOOD [None]
  - ABDOMINAL DISCOMFORT [None]
